FAERS Safety Report 25518737 (Version 3)
Quarter: 2025Q3

REPORT INFORMATION
  Report Type: Spontaneous
  Country: EU (occurrence: EU)
  Receive Date: 20250704
  Receipt Date: 20250729
  Transmission Date: 20251021
  Serious: Yes (Other)
  Sender: AUROBINDO
  Company Number: EU-ELI_LILLY_AND_COMPANY-IT202506005910

PATIENT
  Age: 63 Year
  Sex: Female

DRUGS (12)
  1. ARIPIPRAZOLE [Suspect]
     Active Substance: ARIPIPRAZOLE
     Indication: Depression
     Route: 065
  2. ALPRAZOLAM [Suspect]
     Active Substance: ALPRAZOLAM
     Indication: Product used for unknown indication
     Dosage: 12 DROP, TWO TIMES A DAY
     Route: 065
     Dates: start: 202204
  3. PAROXETINE [Suspect]
     Active Substance: PAROXETINE
     Indication: Product used for unknown indication
     Dosage: 20 MILLIGRAM, ONCE A DAY
     Route: 065
     Dates: start: 202204
  4. PREGABALIN [Suspect]
     Active Substance: PREGABALIN
     Indication: Depression
     Dosage: 150 MILLIGRAM, ONCE A DAY(75 MG, BID)
     Route: 065
  5. PREGABALIN [Suspect]
     Active Substance: PREGABALIN
     Indication: Depression
     Dosage: 75 MILLIGRAM, ONCE A DAY(75 MG, DAILY)
     Route: 065
     Dates: start: 202103
  6. PREGABALIN [Suspect]
     Active Substance: PREGABALIN
     Dosage: 150 MILLIGRAM, ONCE A DAY(75 MG, BID)
     Route: 065
     Dates: start: 202110
  7. LORAZEPAM [Suspect]
     Active Substance: LORAZEPAM
     Indication: Depression
     Dosage: 2 MILLIGRAM, ONCE A DAY(2 MG, EACH EVENING)
     Route: 065
     Dates: start: 2021
  8. DULOXETINE [Suspect]
     Active Substance: DULOXETINE
     Indication: Depression
     Dosage: 90 MILLIGRAM, ONCE A DAY(90 MG, DAILY)
     Route: 065
  9. DULOXETINE [Suspect]
     Active Substance: DULOXETINE
     Indication: Insomnia
     Dosage: 120 MILLIGRAM, ONCE A DAY(120 MG, DAILY)
     Route: 065
     Dates: start: 2021
  10. DULOXETINE [Suspect]
     Active Substance: DULOXETINE
     Indication: Anxiety
     Dosage: 60 MILLIGRAM, ONCE A DAY
     Route: 065
     Dates: start: 202103
  11. DULOXETINE [Suspect]
     Active Substance: DULOXETINE
     Dosage: 60 MILLIGRAM, ONCE A DAY(60 MG, DAILY)
     Route: 065
     Dates: start: 202107
  12. DULOXETINE [Suspect]
     Active Substance: DULOXETINE
     Dosage: 90 MILLIGRAM, ONCE A DAY(90 MG, DAILY)
     Route: 065
     Dates: start: 202110

REACTIONS (8)
  - Sedation complication [Unknown]
  - Suicidal ideation [Unknown]
  - Weight increased [Recovering/Resolving]
  - Therapy partial responder [Unknown]
  - Therapeutic product effect incomplete [Recovering/Resolving]
  - Off label use [Unknown]
  - Intentional product misuse [Unknown]
  - Treatment noncompliance [Unknown]

NARRATIVE: CASE EVENT DATE: 20210101
